FAERS Safety Report 7326335-0 (Version None)
Quarter: 2011Q1

REPORT INFORMATION
  Report Type: 
  Country: None (occurrence: None)
  Receive Date: 20110302
  Receipt Date: 20110224
  Transmission Date: 20110831
  Serious: Yes (Other)
  Sender: FDA-Public Use
  Company Number: B0701903A

PATIENT
  Age: 91 Year
  Sex: Female
  Weight: 65 kg

DRUGS (2)
  1. AMPICILLIN SODIUM/SULBACTAM SODIUM [Suspect]
     Indication: PNEUMONIA
     Dosage: 3.6G PER DAY
     Route: 042
     Dates: start: 20110128, end: 20110202
  2. CLARITHROMYCIN [Suspect]
     Indication: PNEUMONIA
     Dosage: 1000MG PER DAY
     Route: 048
     Dates: start: 20110128, end: 20110202

REACTIONS (3)
  - ALANINE AMINOTRANSFERASE INCREASED [None]
  - GAMMA-GLUTAMYLTRANSFERASE INCREASED [None]
  - HEPATOCELLULAR INJURY [None]
